FAERS Safety Report 8422938-0 (Version None)
Quarter: 2012Q2

REPORT INFORMATION
  Report Type: 
  Country: None (occurrence: None)
  Receive Date: 20120608
  Receipt Date: 20120508
  Transmission Date: 20120825
  Serious: Yes (Hospitalization)
  Sender: FDA-Public Use
  Company Number: JP-GLAXOSMITHKLINE-B0800902A

PATIENT
  Sex: Female

DRUGS (3)
  1. TRIAZOLAM [Suspect]
     Dosage: .125MG PER DAY
     Route: 048
     Dates: start: 20120328, end: 20120505
  2. LAMICTAL [Suspect]
     Indication: BIPOLAR DISORDER
     Dosage: 25MG PER DAY
     Route: 048
     Dates: start: 20120421, end: 20120426
  3. LAMICTAL [Suspect]
     Dosage: 50MG PER DAY
     Route: 048
     Dates: start: 20120427, end: 20120505

REACTIONS (6)
  - RASH [None]
  - DIZZINESS [None]
  - LIP SWELLING [None]
  - WHITE BLOOD CELL COUNT INCREASED [None]
  - STEVENS-JOHNSON SYNDROME [None]
  - C-REACTIVE PROTEIN INCREASED [None]
